FAERS Safety Report 21554904 (Version 2)
Quarter: 2022Q4

REPORT INFORMATION
  Report Type: Spontaneous
  Country: US (occurrence: US)
  Receive Date: 20221104
  Receipt Date: 20221110
  Transmission Date: 20230112
  Serious: Yes (Other)
  Sender: FDA-Public Use
  Company Number: US-PFIZER INC-PV202200093990

PATIENT
  Age: 67 Year
  Sex: Female

DRUGS (5)
  1. METHYLPREDNISOLONE SODIUM SUCCINATE [Suspect]
     Active Substance: METHYLPREDNISOLONE SODIUM SUCCINATE
     Indication: Immune-mediated myocarditis
     Dosage: 1 G, DAILY (FOR 4 DAYS)
     Route: 042
  2. PREDNISONE [Suspect]
     Active Substance: PREDNISONE
     Indication: Immune-mediated myocarditis
     Dosage: 1 MG/KG (DAY 5-DAY 21)
  3. ABATACEPT [Concomitant]
     Active Substance: ABATACEPT
     Dosage: 500 MG EVERY 2 WEEKS,INCREASED TO 1000 MG AFTER THE FIRST 2 DOSES
  4. MYCOPHENOLATE MOFETIL [Concomitant]
     Active Substance: MYCOPHENOLATE MOFETIL
     Dosage: 750 MG ORALLY TWICE A DAY (DOSE REDUCED FROM 1000)
     Route: 048
  5. METHOTREXATE [Concomitant]
     Active Substance: METHOTREXATE
     Dosage: METHOTREXATE 15 MG WEEKLY FOR 6 WEEKS

REACTIONS (1)
  - Substance-induced psychotic disorder [Unknown]
